FAERS Safety Report 6457025-4 (Version None)
Quarter: 2009Q4

REPORT INFORMATION
  Report Type: 
  Country: None (occurrence: None)
  Receive Date: 20091125
  Receipt Date: 20091116
  Transmission Date: 20100525
  Serious: Yes (Other)
  Sender: FDA-Public Use
  Company Number: DE-JNJCH-2009029489

PATIENT
  Sex: Female
  Weight: 55 kg

DRUGS (2)
  1. REGAINE 2% [Suspect]
     Indication: ALOPECIA
     Dosage: TEXT:UNKNOWN
     Route: 061
     Dates: start: 20060201, end: 20090901
  2. REGAINE 2% [Suspect]
     Dosage: TEXT:1ML TWICE DAILY
     Route: 061
     Dates: start: 20090901, end: 20090901

REACTIONS (3)
  - ARRHYTHMIA [None]
  - ATRIAL FIBRILLATION [None]
  - ATRIOVENTRICULAR BLOCK [None]
